FAERS Safety Report 4947304-1 (Version None)
Quarter: 2006Q1

REPORT INFORMATION
  Report Type: 
  Country: None (occurrence: None)
  Receive Date: 20060313
  Receipt Date: 20060228
  Transmission Date: 20060701
  Serious: Yes (Other)
  Sender: FDA-Public Use
  Company Number: HQWYE936916AUG05

PATIENT
  Age: 53 Year
  Sex: Female
  Weight: 83.08 kg

DRUGS (2)
  1. PREMPRO [Suspect]
     Indication: HORMONE REPLACEMENT THERAPY
  2. EFFEXOR XR [Suspect]

REACTIONS (7)
  - ANXIETY [None]
  - BREAST CANCER FEMALE [None]
  - CHEST DISCOMFORT [None]
  - HYPERTENSION [None]
  - LUNG NEOPLASM [None]
  - OESTROGEN RECEPTOR ASSAY POSITIVE [None]
  - PROGESTERONE RECEPTOR ASSAY POSITIVE [None]
